FAERS Safety Report 17872192 (Version 1)
Quarter: 2020Q2

REPORT INFORMATION
  Report Type: Report from Study
  Country: IT (occurrence: IT)
  Receive Date: 20200608
  Receipt Date: 20200608
  Transmission Date: 20200714
  Serious: Yes (Other)
  Sender: FDA-Public Use
  Company Number: IT-ACCORD-184674

PATIENT
  Age: 38 Year
  Sex: Female

DRUGS (5)
  1. DEXAMETHASONE PHOSPHATE HOSPIRA [Concomitant]
     Active Substance: DEXAMETHASONE PHOSPHATE
     Dosage: 4 MG / ML
  2. EUTIROX [Concomitant]
     Active Substance: LEVOTHYROXINE SODIUM
  3. PACLITAXEL ACCORD HEALTHCARE ITALY [Suspect]
     Active Substance: PACLITAXEL
     Indication: BREAST CANCER
     Dates: start: 20200122
  4. KANJINTI [Suspect]
     Active Substance: TRASTUZUMAB-ANNS
     Indication: BREAST CANCER
     Dates: start: 20200122
  5. KANJINTI [Suspect]
     Active Substance: TRASTUZUMAB-ANNS
     Indication: BREAST CANCER
     Dates: start: 20200122

REACTIONS (7)
  - Rosacea [Unknown]
  - Xerophthalmia [Unknown]
  - Asthenia [Unknown]
  - Nasal pruritus [Unknown]
  - Headache [Unknown]
  - Gingival bleeding [Unknown]
  - Dry mouth [Unknown]

NARRATIVE: CASE EVENT DATE: 20200122
